FAERS Safety Report 11053562 (Version 1)
Quarter: 2015Q2

REPORT INFORMATION
  Report Type: Spontaneous
  Country: MA (occurrence: MA)
  Receive Date: 20150421
  Receipt Date: 20150421
  Transmission Date: 20150821
  Serious: Yes (Other)
  Sender: FDA-Public Use
  Company Number: PHHY2015MA044144

PATIENT
  Age: 70 Year
  Sex: Male
  Weight: 83 kg

DRUGS (11)
  1. LIDOCAINE. [Suspect]
     Active Substance: LIDOCAINE
     Indication: ANAESTHESIA
     Dosage: 5 ML, UNK, MIXTURE IN LOWER TEMPORAL PERIBULAR
     Route: 047
  2. PROPOFOL. [Concomitant]
     Active Substance: PROPOFOL
     Indication: PRODUCT USED FOR UNKNOWN INDICATION
     Dosage: 150 MG
     Route: 065
  3. AMLODIPINE [Concomitant]
     Active Substance: AMLODIPINE BESYLATE
     Indication: HYPERTENSION
     Route: 065
  4. ISOFLURANE. [Concomitant]
     Active Substance: ISOFLURANE
     Indication: SEDATION
     Route: 065
  5. CIPROFLOXACIN. [Concomitant]
     Active Substance: CIPROFLOXACIN
     Indication: PREOPERATIVE CARE
     Dosage: 1 G
     Route: 065
  6. INSULIN [Concomitant]
     Active Substance: INSULIN NOS
     Indication: DIABETES MELLITUS
     Route: 065
  7. BUPIVACAINE [Concomitant]
     Active Substance: BUPIVACAINE
     Indication: ANAESTHESIA
     Dosage: 5 ML, UNK, MIXTURE IN LOWER TEMPORAL PERBULBAR
     Route: 047
  8. BUPIVACAINE [Concomitant]
     Active Substance: BUPIVACAINE
     Dosage: 3 ML, UNK, MIXTURE IN UPPER NASAL PERIBULBAR
     Route: 047
  9. FENTANYL. [Concomitant]
     Active Substance: FENTANYL
     Indication: PRODUCT USED FOR UNKNOWN INDICATION
     Dosage: 150 UG
     Route: 065
  10. LIDOCAINE. [Suspect]
     Active Substance: LIDOCAINE
     Dosage: 3 ML, UNK, MIXTURE IN UPPER PERIBULAR
     Route: 047
  11. XYZINE//HYDROXYZINE [Concomitant]
     Indication: PREOPERATIVE CARE
     Dosage: 75 MG
     Route: 065

REACTIONS (2)
  - Hypertension [Recovered/Resolved]
  - Generalised tonic-clonic seizure [Recovered/Resolved]
